FAERS Safety Report 25105097 (Version 1)
Quarter: 2025Q1

REPORT INFORMATION
  Report Type: Spontaneous
  Country: US (occurrence: None)
  Receive Date: 20250320
  Receipt Date: 20250320
  Transmission Date: 20250409
  Serious: Yes (Life-Threatening, Hospitalization)
  Sender: FDA-CTU
  Company Number: None

PATIENT
  Age: 88 Year
  Sex: Male

DRUGS (1)
  1. LINEZOLID [Suspect]
     Active Substance: LINEZOLID
     Dates: start: 20241029, end: 20241106

REACTIONS (2)
  - Haematochezia [None]
  - Thrombocytopenia [None]

NARRATIVE: CASE EVENT DATE: 20241107
